FAERS Safety Report 11168611 (Version 1)
Quarter: 2015Q2

REPORT INFORMATION
  Report Type: Spontaneous
  Country: HK (occurrence: HK)
  Receive Date: 20150605
  Receipt Date: 20150605
  Transmission Date: 20150821
  Serious: Yes (Other)
  Sender: FDA-Public Use
  Company Number: HK-AMGEN-HKGSP2015054383

PATIENT
  Sex: Female

DRUGS (1)
  1. ENBREL [Suspect]
     Active Substance: ETANERCEPT
     Indication: RHEUMATOID ARTHRITIS
     Dosage: UNK
     Route: 065

REACTIONS (5)
  - Lung infection [Recovering/Resolving]
  - Influenza [Unknown]
  - Arthralgia [Unknown]
  - Joint swelling [Unknown]
  - Productive cough [Unknown]

NARRATIVE: CASE EVENT DATE: 201503
